FAERS Safety Report 8952462 (Version 1)
Quarter: 2012Q4

REPORT INFORMATION
  Report Type: 
  Country: US (occurrence: US)
  Receive Date: 20121205
  Receipt Date: 20121205
  Transmission Date: 20130627
  Serious: No
  Sender: FDA-Public Use
  Company Number: US-BIOGENIDEC-2012BI057043

PATIENT
  Sex: Female

DRUGS (1)
  1. AVONEX [Suspect]
     Indication: MULTIPLE SCLEROSIS
     Route: 030
     Dates: start: 20060223

REACTIONS (5)
  - Memory impairment [Not Recovered/Not Resolved]
  - Mobility decreased [Unknown]
  - Injection site pain [Recovered/Resolved]
  - Fatigue [Unknown]
  - Anxiety [Recovered/Resolved]
